FAERS Safety Report 10969459 (Version 1)
Quarter: 2015Q1

REPORT INFORMATION
  Report Type: Report from Study
  Country: CN (occurrence: None)
  Receive Date: 20150327
  Receipt Date: 20150327
  Transmission Date: 20150721
  Serious: No
  Sender: FDA-Public Use
  Company Number: 8016985

PATIENT
  Age: 45 Year
  Sex: Female

DRUGS (1)
  1. EUTHYROX 50 MCG(LEVOTHYROXINE SODIUM) (50 MICROGRAM, TABLET) (LEVOTHYROXINE SODIUM) [Suspect]
     Active Substance: LEVOTHYROXINE SODIUM
     Indication: THYROIDECTOMY
     Dosage: ONE TABLET (1 IN 1 D)
     Route: 048
     Dates: start: 201409, end: 201502

REACTIONS (2)
  - Endometrial hypertrophy [None]
  - Urinary tract infection [None]

NARRATIVE: CASE EVENT DATE: 201410
